FAERS Safety Report 24773635 (Version 1)
Quarter: 2024Q4

REPORT INFORMATION
  Report Type: Spontaneous
  Country: US (occurrence: US)
  Receive Date: 20241225
  Receipt Date: 20241225
  Transmission Date: 20250115
  Serious: Yes (Other)
  Sender: ALEXION PHARMACEUTICALS
  Company Number: US-ASTRAZENECA-202412USA018155US

PATIENT
  Age: 37 Year

DRUGS (13)
  1. FARXIGA [Suspect]
     Active Substance: DAPAGLIFLOZIN PROPANEDIOL
  2. FARXIGA [Suspect]
     Active Substance: DAPAGLIFLOZIN PROPANEDIOL
     Route: 048
  3. FARXIGA [Suspect]
     Active Substance: DAPAGLIFLOZIN PROPANEDIOL
  4. FARXIGA [Suspect]
     Active Substance: DAPAGLIFLOZIN PROPANEDIOL
     Route: 048
  5. ENTRESTO [Suspect]
     Active Substance: SACUBITRIL\VALSARTAN
     Dosage: 49/51MG, BID
     Route: 048
  6. ENTRESTO [Suspect]
     Active Substance: SACUBITRIL\VALSARTAN
     Dosage: 49/51MG, BID
  7. CARVEDILOL [Suspect]
     Active Substance: CARVEDILOL
     Route: 065
  8. CARVEDILOL [Suspect]
     Active Substance: CARVEDILOL
     Route: 065
  9. SPIRONOLACTONE [Suspect]
     Active Substance: SPIRONOLACTONE
  10. TAMSULOSIN [Suspect]
     Active Substance: TAMSULOSIN
     Route: 065
  11. TAMSULOSIN [Suspect]
     Active Substance: TAMSULOSIN
     Route: 065
  12. KAYEXALATE [Suspect]
     Active Substance: SODIUM POLYSTYRENE SULFONATE
     Route: 065
  13. KAYEXALATE [Suspect]
     Active Substance: SODIUM POLYSTYRENE SULFONATE
     Route: 065

REACTIONS (9)
  - Erectile dysfunction [Unknown]
  - Blood potassium increased [Unknown]
  - Therapy cessation [Unknown]
  - Prostatic disorder [Unknown]
  - Swelling [Unknown]
  - Lethargy [Unknown]
  - Ejection fraction decreased [Unknown]
  - Therapy change [Unknown]
  - Product dose omission issue [Unknown]
